FAERS Safety Report 5360299-4 (Version None)
Quarter: 2007Q2

REPORT INFORMATION
  Report Type: 
  Country: None (occurrence: None)
  Receive Date: 20070618
  Receipt Date: 20070614
  Transmission Date: 20071010
  Serious: Yes (Disabling)
  Sender: FDA-Public Use
  Company Number: FR-BRISTOL-MYERS SQUIBB COMPANY-13815535

PATIENT
  Age: 76 Year
  Sex: Female

DRUGS (1)
  1. APROVEL TABS [Suspect]
     Route: 048
     Dates: end: 20070518

REACTIONS (9)
  - AMNESIA [None]
  - ANOREXIA [None]
  - ARTHRALGIA [None]
  - DEPRESSION [None]
  - DRY MOUTH [None]
  - DYSGEUSIA [None]
  - INSOMNIA [None]
  - MUSCLE SPASMS [None]
  - VISION BLURRED [None]
